FAERS Safety Report 23645448 (Version 1)
Quarter: 2024Q1

REPORT INFORMATION
  Report Type: Spontaneous
  Country: US (occurrence: US)
  Receive Date: 20240318
  Receipt Date: 20240318
  Transmission Date: 20240410
  Serious: No
  Sender: FDA-Public Use
  Company Number: US-002147023-NVSC2024US053861

PATIENT

DRUGS (3)
  1. METOPROLOL [Suspect]
     Active Substance: METOPROLOL
     Indication: Product used for unknown indication
     Dosage: UNK
     Route: 065
  2. VALSARTAN [Suspect]
     Active Substance: VALSARTAN
     Indication: Hypertensive crisis
     Dosage: 80 MG
     Route: 065
  3. VALSARTAN [Suspect]
     Active Substance: VALSARTAN
     Dosage: 160 MG
     Route: 065

REACTIONS (7)
  - Gastrooesophageal reflux disease [Unknown]
  - Heart rate increased [Unknown]
  - Chronic sinusitis [Unknown]
  - Rhinitis [Unknown]
  - Blood pressure abnormal [Unknown]
  - Bone disorder [Unknown]
  - Sleep apnoea syndrome [Unknown]
